FAERS Safety Report 16206713 (Version 2)
Quarter: 2019Q2

REPORT INFORMATION
  Report Type: Spontaneous
  Country: FR (occurrence: FR)
  Receive Date: 20190417
  Receipt Date: 20190510
  Transmission Date: 20190711
  Serious: Yes (Death, Other)
  Sender: FDA-Public Use
  Company Number: FR-AUROBINDO-AUR-APL-2019-021504

PATIENT

DRUGS (9)
  1. IMOVANE [Suspect]
     Active Substance: ZOPICLONE
     Indication: MENTAL DISORDER
     Dosage: 1 DOSAGE FORM, DAILY
     Route: 048
     Dates: start: 20180522
  2. CLOZAPINE. [Suspect]
     Active Substance: CLOZAPINE
     Indication: MENTAL DISORDER
     Dosage: 270 MILLIGRAM, DAILY
     Route: 048
     Dates: start: 20190104
  3. QUETIAPINE MYLAN [Suspect]
     Active Substance: QUETIAPINE
     Indication: MENTAL DISORDER
     Dosage: 800 MILLIGRAM, DAILY
     Route: 048
     Dates: start: 20180625
  4. DIAZEPAM. [Suspect]
     Active Substance: DIAZEPAM
     Indication: MENTAL DISORDER
     Dosage: 30 MILLIGRAM, DAILY
     Route: 048
     Dates: start: 20190227
  5. LARGACTIL [Suspect]
     Active Substance: CHLORPROMAZINE
     Indication: MENTAL DISORDER
     Dosage: 200 MILLIGRAM, DAILY
     Route: 048
     Dates: start: 20190126
  6. GABAPENTIN ARROW FILM-COATED TABLETS 600MG [Suspect]
     Active Substance: GABAPENTIN
     Indication: PRODUCT USED FOR UNKNOWN INDICATION
     Dosage: 600 MILLIGRAM, ONCE A DAY
     Route: 048
     Dates: start: 20180201
  7. TERALITHE [Suspect]
     Active Substance: LITHIUM CARBONATE
     Indication: MENTAL DISORDER
     Dosage: 1000 MILLIGRAM, DAILY
     Route: 048
     Dates: start: 20171122
  8. LOXAPAC [Suspect]
     Active Substance: LOXAPINE
     Indication: MENTAL DISORDER
     Dosage: 300 MILLIGRAM, DAILY
     Route: 048
  9. MOVICOL [Suspect]
     Active Substance: POLYETHYLENE GLYCOL 3350\POTASSIUM CHLORIDE\SODIUM BICARBONATE\SODIUM CHLORIDE
     Indication: CONSTIPATION PROPHYLAXIS
     Dosage: 4 DOSAGE FORM, ONCE A DAY
     Route: 048

REACTIONS (3)
  - Intestinal obstruction [Fatal]
  - Septic shock [Fatal]
  - Peritonitis [Fatal]

NARRATIVE: CASE EVENT DATE: 20190311
